FAERS Safety Report 5080695-2 (Version None)
Quarter: 2006Q3

REPORT INFORMATION
  Report Type: 
  Country: None (occurrence: None)
  Receive Date: 20060809
  Receipt Date: 20060724
  Transmission Date: 20061208
  Serious: Yes (Hospitalization)
  Sender: FDA-Public Use
  Company Number: DSA_28518_2006

PATIENT
  Age: 66 Year
  Sex: Female

DRUGS (7)
  1. LORAZEPAM [Suspect]
     Dosage: 10 MG ONCE
  2. TRANYLCYPROMINE SULFATE [Suspect]
     Dosage: 100 MG ONCE
  3. TRIFLUOPERAZINE HCL [Suspect]
     Dosage: 20 MG ONCE
  4. FLUOXETINE [Suspect]
     Dosage: 60 MG ONCE
  5. REMIFENTANIL [Suspect]
     Indication: OVERDOSE
     Dosage: DF CON IV
     Route: 042
  6. MIDAZOLAM [Concomitant]
  7. PANCURONIUM BROMIDE [Concomitant]

REACTIONS (8)
  - AGITATION [None]
  - BLOOD PRESSURE INCREASED [None]
  - COMA [None]
  - DRUG INTERACTION [None]
  - HEART RATE INCREASED [None]
  - MULTIPLE DRUG OVERDOSE INTENTIONAL [None]
  - NEUROLEPTIC MALIGNANT SYNDROME [None]
  - SEROTONIN SYNDROME [None]
